FAERS Safety Report 9683599 (Version 1)
Quarter: 2013Q4

REPORT INFORMATION
  Report Type: Spontaneous
  Country: US (occurrence: US)
  Receive Date: 20131112
  Receipt Date: 20131112
  Transmission Date: 20140711
  Serious: Yes (Hospitalization)
  Sender: FDA-Public Use
  Company Number: US-JNJFOC-20131102581

PATIENT
  Age: 24 Year
  Sex: Male

DRUGS (7)
  1. INVEGA SUSTENNA [Suspect]
     Indication: SCHIZOPHRENIA
     Route: 030
     Dates: start: 201302
  2. COGENTIN [Concomitant]
     Route: 065
  3. BUSPAR [Concomitant]
     Route: 065
     Dates: start: 2013
  4. DEPAKOTE [Concomitant]
     Route: 065
     Dates: start: 2013
  5. RESTORIL [Concomitant]
     Route: 065
     Dates: start: 2013
  6. SEROQUEL [Concomitant]
     Route: 065
     Dates: start: 2013
  7. LEXAPRO [Concomitant]
     Route: 065
     Dates: start: 2013

REACTIONS (2)
  - Hallucination, auditory [Unknown]
  - Aggression [Unknown]
